FAERS Safety Report 8787723 (Version 1)
Quarter: 2012Q4

REPORT INFORMATION
  Report Type: 
  Country: US (occurrence: US)
  Receive Date: 20120914
  Receipt Date: 20120914
  Transmission Date: 20130627
  Serious: No
  Sender: FDA-Public Use
  Company Number: US-VERTEX PHARMACEUTICAL INC.-AE-2012-006385

PATIENT
  Age: 55 Year
  Sex: Female
  Weight: 81.82 kg

DRUGS (14)
  1. INCIVEK [Suspect]
     Indication: HEPATITIS C
     Route: 048
     Dates: start: 20120426, end: 201207
  2. RIBAVIRIN [Concomitant]
     Indication: HEPATITIS C
     Route: 048
     Dates: start: 20120426
  3. PEGASYS [Concomitant]
     Indication: HEPATITIS C
     Route: 058
     Dates: start: 20120426
  4. CELEXA [Concomitant]
     Indication: DEPRESSION
     Route: 048
  5. PRISTIQ [Concomitant]
     Indication: DEPRESSION
     Route: 048
  6. EXFORGE [Concomitant]
     Indication: HYPERTENSION
     Route: 048
  7. VALTREX [Concomitant]
     Indication: HERPES VIRUS INFECTION
     Route: 048
  8. ADVIL [Concomitant]
     Indication: PAIN
     Route: 048
  9. CALCIUM AND VITAMIN D [Concomitant]
  10. FISH OIL [Concomitant]
  11. B COMPLEX [Concomitant]
  12. MULTIVITAMIN [Concomitant]
  13. VITAMIN D3 [Concomitant]
  14. MILK THISTLE [Concomitant]

REACTIONS (9)
  - Pyrexia [Recovered/Resolved]
  - Heart rate increased [Recovered/Resolved]
  - Insomnia [Not Recovered/Not Resolved]
  - Pain [Not Recovered/Not Resolved]
  - Pain in extremity [Unknown]
  - Hypoaesthesia [Unknown]
  - Feeling abnormal [Not Recovered/Not Resolved]
  - Chills [Not Recovered/Not Resolved]
  - Nausea [Not Recovered/Not Resolved]
